FAERS Safety Report 7470398-9 (Version None)
Quarter: 2011Q2

REPORT INFORMATION
  Report Type: 
  Country: None (occurrence: None)
  Receive Date: 20110510
  Receipt Date: 20110427
  Transmission Date: 20111010
  Serious: Yes (Other)
  Sender: FDA-Public Use
  Company Number: US-CELGENEUS-163-21880-11020051

PATIENT
  Sex: Male
  Weight: 95.3 kg

DRUGS (4)
  1. SIMVASTATIN [Suspect]
     Route: 065
  2. REVLIMID [Suspect]
     Dosage: 15 MILLIGRAM
     Route: 048
     Dates: start: 20100923
  3. REVLIMID [Suspect]
     Dosage: 7.5 MILLIGRAM
     Route: 048
     Dates: start: 20110101
  4. DEXAMETHASONE [Suspect]
     Route: 065

REACTIONS (4)
  - MACULAR OEDEMA [None]
  - CATARACT [None]
  - BLOOD COUNT ABNORMAL [None]
  - MUSCLE SPASMS [None]
